FAERS Safety Report 20745643 (Version 3)
Quarter: 2022Q2

REPORT INFORMATION
  Report Type: Spontaneous
  Country: US (occurrence: US)
  Receive Date: 20220425
  Receipt Date: 20220606
  Transmission Date: 20220721
  Serious: No
  Sender: FDA-Public Use
  Company Number: US-PFIZER INC-202200516128

PATIENT
  Age: 18 Year
  Sex: Male
  Weight: 58.97 kg

DRUGS (2)
  1. GENOTROPIN [Suspect]
     Active Substance: SOMATROPIN
     Dosage: 0.2 MG, 1X/DAY
  2. GENOTROPIN [Suspect]
     Active Substance: SOMATROPIN
     Dosage: UNK
     Dates: start: 2021

REACTIONS (2)
  - Drug dose omission by device [Not Recovered/Not Resolved]
  - Device use issue [Not Recovered/Not Resolved]
